FAERS Safety Report 24562907 (Version 3)
Quarter: 2024Q4

REPORT INFORMATION
  Report Type: Report from Study
  Country: US (occurrence: US)
  Receive Date: 20241030
  Receipt Date: 20241219
  Transmission Date: 20250115
  Serious: Yes (Hospitalization, Other)
  Sender: ABBVIE
  Company Number: US-ABBVIE-5847617

PATIENT
  Age: 53 Year
  Sex: Male

DRUGS (2)
  1. RINVOQ [Suspect]
     Active Substance: UPADACITINIB
     Indication: Rheumatoid arthritis
     Dosage: 15 MILLIGRAM
     Route: 048
     Dates: start: 20241011
  2. RINVOQ [Suspect]
     Active Substance: UPADACITINIB
     Indication: Rheumatoid arthritis
     Dosage: FORM STRENGTH: 15 MILLIGRAM?EXTENDED RELEASE
     Route: 048
     Dates: start: 20230501, end: 20240425

REACTIONS (8)
  - Spinal operation [Unknown]
  - Medical device site abscess [Recovered/Resolved]
  - Spinal operation [Unknown]
  - Back pain [Recovered/Resolved]
  - Fatigue [Unknown]
  - Musculoskeletal stiffness [Unknown]
  - Joint swelling [Unknown]
  - Medical device site infection [Recovered/Resolved]

NARRATIVE: CASE EVENT DATE: 20240401
